FAERS Safety Report 15966555 (Version 2)
Quarter: 2019Q1

REPORT INFORMATION
  Report Type: Spontaneous
  Country: US (occurrence: US)
  Receive Date: 20190215
  Receipt Date: 20190226
  Transmission Date: 20190418
  Serious: No
  Sender: FDA-Public Use
  Company Number: US-HORIZON-PRO-0030-2019

PATIENT
  Age: 28 Year
  Sex: Male

DRUGS (13)
  1. ZYRTEC [Concomitant]
     Active Substance: CETIRIZINE HYDROCHLORIDE
  2. METROPOLOL [Concomitant]
     Active Substance: METOPROLOL
     Dosage: 50MG BID
  3. HYDRALAZINE [Concomitant]
     Active Substance: HYDRALAZINE HYDROCHLORIDE
     Dosage: 100MG BID
  4. GABAPENTIN. [Concomitant]
     Active Substance: GABAPENTIN
     Dosage: 100MG BED TIME
  5. NIFEDIPIN ER [Concomitant]
     Dosage: 90MG TWICE A DAY
  6. DIALYVITE [Concomitant]
     Active Substance: ASCORBIC ACID\BIOTIN\CALCIUM PANTOTHENATE\COBALAMIN\FOLIC ACID\NIACINAMIDE\PYRIDOXINE HYDROCHLORIDE\RIBOFLAVIN\THIAMINE MONONITRATE
  7. LISINOPRIL. [Concomitant]
     Active Substance: LISINOPRIL
     Dosage: 40 MG ONCE A DAY
  8. SYNTHROID [Concomitant]
     Active Substance: LEVOTHYROXINE SODIUM
     Dosage: 1.75 MCGRAM
  9. MIRCERA [Concomitant]
     Active Substance: METHOXY POLYETHYLENE GLYCOL-EPOETIN BETA
     Dosage: 200MG SC
     Route: 058
  10. LIQUACEL [Concomitant]
     Dosage: 600 ML DAILY
  11. KEPPRA [Concomitant]
     Active Substance: LEVETIRACETAM
     Dosage: 750 MG ONCE A DAY
  12. PROCYSBI [Suspect]
     Active Substance: CYSTEAMINE BITARTRATE
     Indication: CYSTINOSIS
     Dosage: 1125 MG (15 X 75 MG CAPSULES) TWICE DAILY
     Dates: start: 2018
  13. REMICADE INFUSION [Concomitant]
     Dosage: 300 MG EVERY 8 WEEKS

REACTIONS (2)
  - Blood pressure diastolic increased [Not Recovered/Not Resolved]
  - Condition aggravated [Not Recovered/Not Resolved]
